FAERS Safety Report 18258605 (Version 2)
Quarter: 2021Q4

REPORT INFORMATION
  Report Type: Spontaneous
  Country: US (occurrence: US)
  Receive Date: 20200911
  Receipt Date: 20211213
  Transmission Date: 20220303
  Serious: No
  Sender: FDA-Public Use
  Company Number: US-PFIZER INC-2020257149

PATIENT
  Age: 86 Year
  Sex: Female

DRUGS (2)
  1. PREGABALIN [Suspect]
     Active Substance: PREGABALIN
     Indication: Intervertebral disc degeneration
     Dosage: 75 MG, 2X/DAY
  2. PREGABALIN [Suspect]
     Active Substance: PREGABALIN
     Indication: Intervertebral disc disorder

REACTIONS (1)
  - Drug ineffective [Unknown]
